FAERS Safety Report 9425926 (Version 4)
Quarter: 2015Q2

REPORT INFORMATION
  Report Type: Spontaneous
  Country: US (occurrence: US)
  Receive Date: 20130729
  Receipt Date: 20150505
  Transmission Date: 20150821
  Serious: Yes (Other)
  Sender: FDA-Public Use
  Company Number: US-B.I. PHARMACEUTICALS,INC./RIDGEFIELD-2013-BI-21894BP

PATIENT
  Sex: Female
  Weight: 63.59 kg

DRUGS (7)
  1. METOPROLOL [Concomitant]
     Active Substance: METOPROLOL
     Dosage: 25 MG
     Route: 048
  2. TRIAMT HCTZ [Concomitant]
     Indication: FLUID RETENTION
     Dosage: STRENGTH: 37.5/25 MG, DAILY DOSE: 75/50 MG
     Route: 048
  3. DILTIAZEM HCL [Concomitant]
     Active Substance: DILTIAZEM HYDROCHLORIDE
     Indication: HYPERTENSION
     Dosage: 240 MG
     Route: 048
  4. TRIAMT HCTZ [Concomitant]
     Indication: HYPERTENSION
     Dosage: STRENGTH: 37.5/25 MG, DAILY DOSE: 37.5MG/25MG
     Route: 048
  5. METOPROLOL [Concomitant]
     Active Substance: METOPROLOL
     Indication: CARDIAC DISORDER
     Dosage: 50 MG
     Route: 048
     Dates: start: 2013
  6. TRIAMT HCTZ [Concomitant]
     Indication: DIURETIC THERAPY
  7. PRADAXA [Suspect]
     Active Substance: DABIGATRAN ETEXILATE MESYLATE
     Indication: HEART RATE IRREGULAR
     Dosage: 300 MG
     Route: 048
     Dates: start: 2012

REACTIONS (2)
  - Restless legs syndrome [Not Recovered/Not Resolved]
  - Breast cancer [Not Recovered/Not Resolved]

NARRATIVE: CASE EVENT DATE: 2013
